FAERS Safety Report 6681885-5 (Version None)
Quarter: 2010Q2

REPORT INFORMATION
  Report Type: 
  Country: None (occurrence: None)
  Receive Date: 20100412
  Receipt Date: 20100329
  Transmission Date: 20101027
  Serious: Yes (Other)
  Sender: FDA-Public Use
  Company Number: 7000008

PATIENT
  Sex: Female

DRUGS (5)
  1. REBIF [Suspect]
     Indication: SECONDARY PROGRESSIVE MULTIPLE SCLEROSIS
     Dosage: 44 MCG, 3 IN 1 WK; 44 MCG, 3 IN 1 WK
     Dates: start: 20070828, end: 20080310
  2. REBIF [Suspect]
     Indication: SECONDARY PROGRESSIVE MULTIPLE SCLEROSIS
     Dosage: 44 MCG, 3 IN 1 WK; 44 MCG, 3 IN 1 WK
     Dates: start: 20080331, end: 20080720
  3. REBIF [Suspect]
     Indication: SECONDARY PROGRESSIVE MULTIPLE SCLEROSIS
     Dosage: 44 MCG, 3 IN 1 WK; 44 MCG, 3 IN 1 WK
     Dates: start: 20080814
  4. PAMELOR [Concomitant]
  5. RANITIDINE [Concomitant]

REACTIONS (8)
  - ABDOMINAL DISTENSION [None]
  - CONSTIPATION [None]
  - GENERALISED OEDEMA [None]
  - MUSCULAR WEAKNESS [None]
  - PARAPLEGIA [None]
  - URINARY RETENTION [None]
  - URINARY TRACT INFECTION [None]
  - VISUAL ACUITY REDUCED [None]
